FAERS Safety Report 17768769 (Version 3)
Quarter: 2020Q2

REPORT INFORMATION
  Report Type: Report from Study
  Country: US (occurrence: US)
  Receive Date: 20200512
  Receipt Date: 20200630
  Transmission Date: 20200714
  Serious: Yes (Hospitalization, Other)
  Sender: FDA-Public Use
  Company Number: US-SA-2020SA118585

PATIENT

DRUGS (11)
  1. SARILUMAB [Suspect]
     Active Substance: SARILUMAB
     Indication: COVID-19
     Dosage: MAB1 200 MG, 1X
     Route: 042
     Dates: start: 20200421, end: 20200421
  2. ACETAMINOPHEN. [Concomitant]
     Active Substance: ACETAMINOPHEN
     Indication: COVID-19
     Dosage: 650 MG, Q6H
     Route: 048
     Dates: start: 20200417, end: 20200427
  3. SARILUMAB [Suspect]
     Active Substance: SARILUMAB
     Dosage: MAB1 200 MG, 1X
     Route: 042
     Dates: start: 20200423, end: 20200423
  4. SOLU-MEDROL [Concomitant]
     Active Substance: METHYLPREDNISOLONE SODIUM SUCCINATE
     Indication: COVID-19
     Dosage: 125 MG, QD
     Route: 042
     Dates: start: 20200421, end: 20200424
  5. SOLU-MEDROL [Concomitant]
     Active Substance: METHYLPREDNISOLONE SODIUM SUCCINATE
     Dosage: 60 MG, QD
     Route: 042
     Dates: start: 20200424, end: 20200425
  6. SOLU-MEDROL [Concomitant]
     Active Substance: METHYLPREDNISOLONE SODIUM SUCCINATE
     Dosage: 40 MG, QD
     Route: 042
     Dates: start: 20200417, end: 20200421
  7. PIPERACILLIN. [Concomitant]
     Active Substance: PIPERACILLIN SODIUM
     Indication: INFECTION
     Dosage: 3.375 G, Q8H
     Route: 042
     Dates: start: 20200426, end: 20200427
  8. AZITHROMYCIN ANHYDROUS. [Concomitant]
     Active Substance: AZITHROMYCIN ANHYDROUS
     Indication: COVID-19
     Dosage: 500 MG, QD
     Route: 042
     Dates: start: 20200417, end: 20200422
  9. PREDNISONE. [Concomitant]
     Active Substance: PREDNISONE
     Indication: COVID-19
     Dosage: 30 MG, QD
     Route: 048
     Dates: start: 20200426, end: 20200426
  10. LOVENOX [Concomitant]
     Active Substance: ENOXAPARIN SODIUM
     Indication: ANTICOAGULANT THERAPY
     Dosage: 60 MG, QD
     Route: 058
     Dates: start: 20200417, end: 20200427
  11. ENOXAPARIN [Concomitant]
     Active Substance: ENOXAPARIN
     Indication: THROMBOSIS PROPHYLAXIS
     Dosage: 60 MG, QD
     Route: 058
     Dates: start: 20200430, end: 20200430

REACTIONS (3)
  - Sepsis [Recovered/Resolved]
  - Abdominal pain lower [Recovered/Resolved]
  - Aspartate aminotransferase increased [Recovered/Resolved]

NARRATIVE: CASE EVENT DATE: 20200423
